FAERS Safety Report 21651046 (Version 1)
Quarter: 2022Q4

REPORT INFORMATION
  Report Type: Spontaneous
  Country: US (occurrence: US)
  Receive Date: 20221128
  Receipt Date: 20221128
  Transmission Date: 20230113
  Serious: Yes (Hospitalization)
  Sender: FDA-Public Use
  Company Number: US-GLAXOSMITHKLINE-US2022173164

PATIENT

DRUGS (2)
  1. ANORO ELLIPTA [Suspect]
     Active Substance: UMECLIDINIUM BROMIDE\VILANTEROL TRIFENATATE
     Indication: Asthma
     Dosage: 1 PUFF(S), QD 62.5-25 MCG
     Route: 055
  2. PREDNISOLONE [Concomitant]
     Active Substance: PREDNISOLONE
     Indication: Sarcoidosis
     Dosage: UNK

REACTIONS (2)
  - Hernia repair [Recovering/Resolving]
  - Expired product administered [Unknown]
